FAERS Safety Report 5154841-6 (Version None)
Quarter: 2006Q4

REPORT INFORMATION
  Report Type: 
  Country: None (occurrence: None)
  Receive Date: 20061121
  Receipt Date: 20061113
  Transmission Date: 20070319
  Serious: Yes (Other)
  Sender: FDA-Public Use
  Company Number: US-KINGPHARMUSA00001-K200601447

PATIENT
  Age: 66 Year
  Sex: Male
  Weight: 87 kg

DRUGS (7)
  1. ARANESP [Suspect]
     Indication: ANAEMIA OF MALIGNANT DISEASE
     Dosage: 300 MCG, Q3W
     Route: 058
     Dates: start: 20060727, end: 20060908
  2. RITUXIMAB [Suspect]
     Dosage: 378 MG/M2, UNK
     Dates: start: 20060502, end: 20060727
  3. CYCLOPHOSPHAMIDE [Concomitant]
     Dates: start: 20060411, end: 20060729
  4. ACYCLOVIR [Concomitant]
     Dates: start: 20060316, end: 20060908
  5. ALLOPURINOL [Concomitant]
     Dosage: 300 MG, UNK
     Dates: start: 20060316, end: 20060727
  6. GABAPENTIN [Concomitant]
     Dates: start: 20050519, end: 20060908
  7. SEPTRA [Suspect]
     Route: 048
     Dates: start: 20060502, end: 20060908

REACTIONS (5)
  - ANAEMIA [None]
  - APLASIA PURE RED CELL [None]
  - DISEASE PROGRESSION [None]
  - RETICULOCYTOPENIA [None]
  - THROMBOCYTOPENIA [None]
